FAERS Safety Report 8620339-3 (Version None)
Quarter: 2012Q3

REPORT INFORMATION
  Report Type: 
  Country: None (occurrence: None)
  Receive Date: 20120824
  Receipt Date: 20120823
  Transmission Date: 20120928
  Serious: Yes (Hospitalization)
  Sender: FDA-Public Use
  Company Number: ZA-ABBOTT-12P-143-0965723-00

PATIENT
  Sex: Female

DRUGS (2)
  1. WARFARIN SODIUM [Concomitant]
     Indication: PRODUCT USED FOR UNKNOWN INDICATION
  2. HUMIRA [Suspect]
     Indication: CROHN'S DISEASE
     Route: 058
     Dates: start: 20111108

REACTIONS (4)
  - COLONIC POLYP [None]
  - ACUTE MYOCARDIAL INFARCTION [None]
  - INTESTINAL POLYP HAEMORRHAGE [None]
  - ELECTROCARDIOGRAM T WAVE INVERSION [None]
